FAERS Safety Report 4399373-8 (Version None)
Quarter: 2004Q2

REPORT INFORMATION
  Report Type: 
  Country: None (occurrence: None)
  Receive Date: 20040607
  Receipt Date: 20040308
  Transmission Date: 20050107
  Serious: Yes (Other)
  Sender: FDA-Public Use
  Company Number: US-SHR-04-019345

PATIENT

DRUGS (1)
  1. CAMPATH [Suspect]
     Indication: T-CELL LYMPHOMA
     Dosage: 3/10MG, UNK
     Route: 065
     Dates: start: 20030101, end: 20030101

REACTIONS (1)
  - HAEMOLYSIS [None]
